FAERS Safety Report 9192792 (Version 1)
Quarter: 2013Q1

REPORT INFORMATION
  Report Type: Spontaneous
  Country: FR (occurrence: FR)
  Receive Date: 20130327
  Receipt Date: 20130327
  Transmission Date: 20140127
  Serious: Yes (Other)
  Sender: FDA-Public Use
  Company Number: FR-PFIZER INC-2013092540

PATIENT
  Age: 72 Year
  Sex: Male

DRUGS (12)
  1. REVATIO [Suspect]
     Indication: PULMONARY ARTERIAL HYPERTENSION
     Dosage: 20 MG, SINGLE
     Route: 048
     Dates: start: 20100804, end: 20100804
  2. LASILIX [Concomitant]
  3. SOLUPRED [Concomitant]
  4. PROTELOS [Concomitant]
  5. DIFFU K [Concomitant]
  6. INEXIUM [Concomitant]
  7. CREON [Concomitant]
  8. KARDEGIC [Concomitant]
  9. TAHOR [Concomitant]
  10. TRACLEER [Concomitant]
  11. REMODULIN [Concomitant]
  12. OXYGEN [Concomitant]
     Dosage: 5 LITERS

REACTIONS (2)
  - Respiratory distress [Recovered/Resolved]
  - Condition aggravated [Recovered/Resolved]
